FAERS Safety Report 19771259 (Version 1)
Quarter: 2021Q3

REPORT INFORMATION
  Report Type: Spontaneous
  Country: CN (occurrence: CN)
  Receive Date: 20210901
  Receipt Date: 20210901
  Transmission Date: 20211014
  Serious: Yes (Hospitalization, Other)
  Sender: FDA-Public Use
  Company Number: CN-SLATE RUN PHARMACEUTICALS-21CN000649

PATIENT

DRUGS (4)
  1. AZITHROMYCIN USP [Suspect]
     Active Substance: AZITHROMYCIN
     Indication: PRODUCT USED FOR UNKNOWN INDICATION
     Dosage: UNK
     Route: 048
  2. AZITHROMYCIN USP [Suspect]
     Active Substance: AZITHROMYCIN
     Dosage: 200 MILLIGRAM, QD
     Dates: start: 201906, end: 201906
  3. IBUPROFEN. [Concomitant]
     Active Substance: IBUPROFEN
     Indication: PRODUCT USED FOR UNKNOWN INDICATION
     Dosage: 7 MILLIGRAM PER KILOGRAM, Q 6 HR
  4. AZITHROMYCIN USP [Suspect]
     Active Substance: AZITHROMYCIN
     Dosage: 10 MILLIGRAM PER KILOGRAM, QD
     Route: 042
     Dates: start: 2019, end: 2019

REACTIONS (8)
  - Rash [Recovering/Resolving]
  - Conjunctivitis [Recovered/Resolved]
  - Pneumonia mycoplasmal [Recovered/Resolved]
  - Pleural effusion [Recovered/Resolved]
  - Erythema multiforme [Recovered/Resolved]
  - Sinus tachycardia [Recovered/Resolved]
  - Pneumonia [Recovered/Resolved]
  - Erythema multiforme [Recovered/Resolved]

NARRATIVE: CASE EVENT DATE: 2019
